FAERS Safety Report 25651474 (Version 1)
Quarter: 2025Q3

REPORT INFORMATION
  Report Type: Spontaneous
  Country: US (occurrence: US)
  Receive Date: 20250806
  Receipt Date: 20250806
  Transmission Date: 20251020
  Serious: No
  Sender: MILLICENT HOLDINGS
  Company Number: US-Millicent Holdings Ltd.-MILL20250267

PATIENT
  Sex: Female

DRUGS (3)
  1. INTRAROSA [Suspect]
     Active Substance: PRASTERONE
     Indication: Atrophic vulvovaginitis
     Dosage: TWICE WEEKLY, ON SUNDAYS AND WEDNESDAYS
     Route: 067
     Dates: start: 20250730
  2. INTRAROSA [Suspect]
     Active Substance: PRASTERONE
     Dosage: DAILY FOR 2 OR 4 WEEKS
     Route: 067
     Dates: start: 202305, end: 2023
  3. INTRAROSA [Suspect]
     Active Substance: PRASTERONE
     Dosage: TWICE WEEKLY, ON SUNDAYS AND WEDNESDAYS
     Dates: start: 2023

REACTIONS (3)
  - Off label use [Unknown]
  - Product prescribing error [Unknown]
  - Product packaging issue [Unknown]
